FAERS Safety Report 8308198-X (Version None)
Quarter: 2012Q2

REPORT INFORMATION
  Report Type: 
  Country: None (occurrence: None)
  Receive Date: 20120424
  Receipt Date: 20120418
  Transmission Date: 20120825
  Serious: Yes (Other)
  Sender: FDA-Public Use
  Company Number: DE-ROCHE-1054678

PATIENT
  Age: 70 Year
  Sex: Male

DRUGS (7)
  1. BENDAMUSTINE [Suspect]
     Indication: LYMPHOPLASMACYTOID LYMPHOMA/IMMUNOCYTOMA
     Route: 042
     Dates: start: 20111231
  2. ONDANSETRON [Concomitant]
     Route: 042
     Dates: start: 20111230
  3. MABTHERA [Suspect]
     Indication: LYMPHOPLASMACYTOID LYMPHOMA/IMMUNOCYTOMA
     Route: 042
     Dates: start: 20111230
  4. LEVOTHYROXINE SODIUM [Concomitant]
     Dosage: THYRONAJOD 75
     Route: 048
  5. ACETAMINOPHEN [Concomitant]
     Route: 048
     Dates: start: 20111230
  6. BISOPROLOL FUMARATE [Concomitant]
     Route: 048
  7. ALLOPURIN [Concomitant]
     Dosage: ALLOPURINOL 100
     Route: 048
     Dates: start: 20111230

REACTIONS (3)
  - BLOOD CREATININE INCREASED [None]
  - RENAL FAILURE ACUTE [None]
  - PYREXIA [None]
